FAERS Safety Report 13334544 (Version 1)
Quarter: 2017Q1

REPORT INFORMATION
  Report Type: Spontaneous
  Country: BD (occurrence: BD)
  Receive Date: 20170314
  Receipt Date: 20170314
  Transmission Date: 20170428
  Serious: Yes (Other)
  Sender: FDA-Public Use
  Company Number: BD-AKORN PHARMACEUTICALS-2017AKN00274

PATIENT
  Age: 52 Year
  Sex: Male

DRUGS (5)
  1. PYRAZINAMIDE. [Suspect]
     Active Substance: PYRAZINAMIDE
     Indication: CHEMOTHERAPY
     Dosage: UNK
     Route: 065
     Dates: start: 201311, end: 2013
  2. UNSPECIFIED CAT-1 ANTI-TUBERCULAR CHEMOTHERAPY [Concomitant]
     Dosage: UNK
     Dates: start: 201312
  3. PYRAZINAMIDE. [Suspect]
     Active Substance: PYRAZINAMIDE
     Dosage: 250 MG, ONCE (DAY 1)
     Route: 065
     Dates: start: 201312
  4. PYRAZINAMIDE. [Suspect]
     Active Substance: PYRAZINAMIDE
     Dosage: 1000 MG, ONCE (DAY 2)
     Route: 065
  5. UNSPECIFIED CAT-1 ANTI-TUBERCULAR CHEMOTHERAPY [Concomitant]
     Indication: CHEMOTHERAPY
     Dosage: UNK
     Route: 065
     Dates: start: 201311, end: 201311

REACTIONS (1)
  - Parkinsonism [Recovered/Resolved]

NARRATIVE: CASE EVENT DATE: 2013
